FAERS Safety Report 23456594 (Version 1)
Quarter: 2024Q1

REPORT INFORMATION
  Report Type: Spontaneous
  Country: GR (occurrence: GR)
  Receive Date: 20240130
  Receipt Date: 20240130
  Transmission Date: 20240409
  Serious: Yes (Other)
  Sender: FDA-Public Use
  Company Number: GR-002147023-NVSC2024GR018202

PATIENT
  Age: 57 Year
  Sex: Female

DRUGS (2)
  1. MAYZENT [Suspect]
     Active Substance: SIPONIMOD
     Indication: Product used for unknown indication
     Dosage: 2 MG, QD
     Route: 065
     Dates: start: 202212, end: 202401
  2. TRILEPTAL [Suspect]
     Active Substance: OXCARBAZEPINE
     Indication: Neuralgia
     Dosage: UNK
     Route: 065

REACTIONS (1)
  - Breast cancer [Unknown]
